FAERS Safety Report 18585141 (Version 2)
Quarter: 2021Q1

REPORT INFORMATION
  Report Type: Spontaneous
  Country: SA (occurrence: SA)
  Receive Date: 20201207
  Receipt Date: 20210128
  Transmission Date: 20210419
  Serious: Yes (Hospitalization)
  Sender: FDA-Public Use
  Company Number: SA-ALXN-A202017635

PATIENT
  Age: 11 Month
  Sex: Male
  Weight: 5 kg

DRUGS (1)
  1. STRENSIQ [Suspect]
     Active Substance: ASFOTASE ALFA
     Indication: HYPOPHOSPHATASIA
     Dosage: 2 MG/KG , TIW
     Route: 058
     Dates: start: 20200429

REACTIONS (1)
  - Drug ineffective [Unknown]
